FAERS Safety Report 4854235-4 (Version None)
Quarter: 2005Q4

REPORT INFORMATION
  Report Type: 
  Country: None (occurrence: None)
  Receive Date: 20051212
  Receipt Date: 20051201
  Transmission Date: 20060501
  Serious: Yes (Other)
  Sender: FDA-Public Use
  Company Number: THYM-10747

PATIENT
  Age: 58 Year
  Sex: Female
  Weight: 66 kg

DRUGS (4)
  1. THYMOGLOBULIN [Suspect]
     Indication: BONE MARROW TRANSPLANT
     Dosage: 60 MG QD IV
     Route: 042
     Dates: start: 20051003, end: 20051003
  2. ACETAMINOPHEN [Concomitant]
  3. DIPHENHYDRAMINE HCL [Concomitant]
  4. METHYLPREDNISOLONE [Concomitant]

REACTIONS (9)
  - ALANINE AMINOTRANSFERASE INCREASED [None]
  - ASPARTATE AMINOTRANSFERASE INCREASED [None]
  - BLOOD ALKALINE PHOSPHATASE INCREASED [None]
  - BLOOD LACTATE DEHYDROGENASE INCREASED [None]
  - CHILLS [None]
  - CONDITION AGGRAVATED [None]
  - INFUSION RELATED REACTION [None]
  - PYREXIA [None]
  - TACHYCARDIA [None]
